FAERS Safety Report 10238084 (Version 1)
Quarter: 2014Q2

REPORT INFORMATION
  Report Type: Spontaneous
  Country: US (occurrence: US)
  Receive Date: 20140616
  Receipt Date: 20140616
  Transmission Date: 20141212
  Serious: Yes (Hospitalization)
  Sender: FDA-Public Use
  Company Number: US-JNJFOC-20140606128

PATIENT
  Age: 2 Year
  Sex: Male

DRUGS (1)
  1. PALIPERIDONE [Suspect]
     Indication: ACCIDENTAL EXPOSURE TO PRODUCT BY CHILD
     Route: 048

REACTIONS (8)
  - Convulsion [Unknown]
  - Electrocardiogram change [Unknown]
  - Tachycardia [Unknown]
  - Hypotension [Unknown]
  - Tremor [Unknown]
  - Ataxia [Unknown]
  - Lethargy [Unknown]
  - Accidental exposure to product by child [Unknown]
